FAERS Safety Report 4942756-5 (Version None)
Quarter: 2006Q1

REPORT INFORMATION
  Report Type: 
  Country: None (occurrence: None)
  Receive Date: 20060224
  Receipt Date: 20060210
  Transmission Date: 20060701
  Serious: Yes (Hospitalization)
  Sender: FDA-Public Use
  Company Number: 2005BH003425

PATIENT
  Age: 47 Year
  Sex: Male
  Weight: 90 kg

DRUGS (7)
  1. ADVATE (OCTOCOG ALFA) [Suspect]
     Indication: ROTATOR CUFF REPAIR
     Dosage: SEE IMAGE
     Route: 042
     Dates: start: 20051124, end: 20051125
  2. ADVATE (OCTOCOG ALFA) [Suspect]
     Indication: ROTATOR CUFF REPAIR
     Dosage: SEE IMAGE
     Route: 042
     Dates: start: 20051126, end: 20051127
  3. ADVATE (OCTOCOG ALFA) [Suspect]
     Indication: ROTATOR CUFF REPAIR
     Dosage: SEE IMAGE
     Route: 042
     Dates: start: 20051128, end: 20051204
  4. ADVATE (OCTOCOG ALFA) [Suspect]
     Indication: ROTATOR CUFF REPAIR
     Dosage: SEE IMAGE
     Route: 042
     Dates: start: 20051219, end: 20060117
  5. ADVATE (OCTOCOG ALFA) [Suspect]
     Indication: ROTATOR CUFF REPAIR
     Dosage: SEE IMAGE
     Route: 042
     Dates: start: 20051123
  6. ADVATE (OCTOCOG ALFA) [Suspect]
     Indication: ROTATOR CUFF REPAIR
     Dosage: SEE IMAGE
     Route: 042
     Dates: start: 20051123
  7. MORPHINE [Suspect]
     Indication: POSTOPERATIVE ANALGESIA
     Dates: start: 20051101, end: 20051101

REACTIONS (10)
  - CHOLESTASIS [None]
  - CONSTIPATION [None]
  - CYTOLYTIC HEPATITIS [None]
  - ENDOCRINE NEOPLASM [None]
  - GENERAL PHYSICAL HEALTH DETERIORATION [None]
  - HAEMORRHAGE [None]
  - PANCREATIC NEOPLASM [None]
  - RETROPERITONEAL HAEMATOMA [None]
  - VOMITING [None]
  - WEIGHT DECREASED [None]
